FAERS Safety Report 20854150 (Version 1)
Quarter: 2022Q2

REPORT INFORMATION
  Report Type: Spontaneous
  Country: US (occurrence: US)
  Receive Date: 20220520
  Receipt Date: 20220520
  Transmission Date: 20220721
  Serious: Yes (Death, Hospitalization, Other)
  Sender: FDA-Public Use
  Company Number: US-BoehringerIngelheim-2022-BI-171316

PATIENT
  Age: 90 Year
  Sex: Male

DRUGS (1)
  1. EMPAGLIFLOZIN [Suspect]
     Active Substance: EMPAGLIFLOZIN
     Indication: Type 2 diabetes mellitus

REACTIONS (6)
  - Death [Fatal]
  - Acute kidney injury [Unknown]
  - Euglycaemic diabetic ketoacidosis [Recovered/Resolved]
  - Delirium [Unknown]
  - Pneumonia aspiration [Unknown]
  - Pancreatic atrophy [Unknown]
